FAERS Safety Report 9573165 (Version 2)
Quarter: 2013Q4

REPORT INFORMATION
  Report Type: Spontaneous
  Country: US (occurrence: US)
  Receive Date: 20131001
  Receipt Date: 20131001
  Transmission Date: 20140711
  Serious: Yes (Other)
  Sender: FDA-Public Use
  Company Number: US-ASTRAZENECA-2013SE55772

PATIENT
  Age: 987 Month
  Sex: Female
  Weight: 60.3 kg

DRUGS (8)
  1. TOPROL-XL [Suspect]
     Indication: HYPERTENSION
     Route: 048
     Dates: start: 201203
  2. CRESTOR [Suspect]
     Indication: BLOOD CHOLESTEROL INCREASED
     Route: 048
  3. ADVAIR [Concomitant]
     Indication: CHRONIC OBSTRUCTIVE PULMONARY DISEASE
     Dosage: 250/50MCG BID
     Route: 055
  4. LOTREL [Concomitant]
     Indication: HYPERTENSION
     Dosage: 5/20MG DAILY
     Route: 048
  5. DOPSONE [Concomitant]
     Indication: DERMATITIS
     Route: 048
  6. ALPHAGEN [Concomitant]
     Indication: GLAUCOMA
     Dosage: 0.1% DAILY
     Route: 050
  7. ROPINIROLE [Concomitant]
     Indication: RESTLESS LEGS SYNDROME
     Dosage: DAILY
     Route: 048
  8. MELATONIN [Concomitant]
     Indication: SLEEP DISORDER
     Route: 048

REACTIONS (7)
  - Dermatitis herpetiformis [Recovering/Resolving]
  - Glaucoma [Not Recovered/Not Resolved]
  - Neuralgia [Recovering/Resolving]
  - Restless legs syndrome [Not Recovered/Not Resolved]
  - Coeliac disease [Unknown]
  - Pain [Unknown]
  - Hypoaesthesia [Recovering/Resolving]
